FAERS Safety Report 8840126 (Version 1)
Quarter: 2012Q4

REPORT INFORMATION
  Report Type: 
  Country: US (occurrence: US)
  Receive Date: 20121015
  Receipt Date: 20121015
  Transmission Date: 20130627
  Serious: No
  Sender: FDA-Public Use
  Company Number: US-PFIZER INC-2012255089

PATIENT
  Sex: Male

DRUGS (1)
  1. NICOTROL INHALER [Suspect]
     Dosage: UNK
     Route: 055
     Dates: start: 2012

REACTIONS (1)
  - Throat irritation [Unknown]
